FAERS Safety Report 8151369-6 (Version None)
Quarter: 2012Q1

REPORT INFORMATION
  Report Type: 
  Country: None (occurrence: None)
  Receive Date: 20120220
  Receipt Date: 20120203
  Transmission Date: 20120608
  Serious: Yes (Other)
  Sender: FDA-Public Use
  Company Number: DZ-ROCHE-1012793

PATIENT
  Age: 51 Year
  Sex: Female

DRUGS (2)
  1. PEGASYS [Suspect]
     Indication: HEPATITIS C
     Route: 058
     Dates: start: 20101101, end: 20111031
  2. COPEGUS [Suspect]
     Indication: HEPATITIS C
     Route: 048
     Dates: start: 20101101, end: 20111031

REACTIONS (9)
  - MUCOSAL ULCERATION [None]
  - ASTHMATIC CRISIS [None]
  - ABDOMINAL PAIN UPPER [None]
  - PRURIGO [None]
  - CHEST PAIN [None]
  - PYREXIA [None]
  - MUSCULOSKELETAL PAIN [None]
  - ASTHENIA [None]
  - INSOMNIA [None]
